FAERS Safety Report 22086362 (Version 1)
Quarter: 2023Q1

REPORT INFORMATION
  Report Type: Spontaneous
  Country: CA (occurrence: CA)
  Receive Date: 20230312
  Receipt Date: 20230312
  Transmission Date: 20230417
  Serious: Yes (Life-Threatening)
  Sender: FDA-Public Use
  Company Number: CA-HLS-202201098

PATIENT
  Sex: Female

DRUGS (4)
  1. CLOZAPINE [Suspect]
     Active Substance: CLOZAPINE
     Indication: Product used for unknown indication
     Route: 065
  2. CLOZAPINE [Suspect]
     Active Substance: CLOZAPINE
     Indication: Mental disorder
     Dosage: AMOUNT: 10 MILLIGRAM?THERAPY DURATION: 58 DAYS
     Route: 065
  3. CLOZAPINE [Suspect]
     Active Substance: CLOZAPINE
     Indication: Mental disorder
     Dosage: AMOUNT: 25 MILLIGRAM?TABLETS DOSAGE FORM?THERAPY DURATION: 58 DAYS
     Route: 065
  4. CLOZAPINE [Suspect]
     Active Substance: CLOZAPINE
     Indication: Mental disorder
     Route: 065

REACTIONS (1)
  - Granulocytopenia [Unknown]
